FAERS Safety Report 8132350-X (Version None)
Quarter: 2012Q1

REPORT INFORMATION
  Report Type: 
  Country: None (occurrence: None)
  Receive Date: 20120213
  Receipt Date: 20120206
  Transmission Date: 20120608
  Serious: Yes (Hospitalization)
  Sender: FDA-Public Use
  Company Number: US-BAYER-2011-035951

PATIENT
  Age: 51 Year
  Sex: Female
  Weight: 67 kg

DRUGS (3)
  1. YAZ [Suspect]
     Indication: PREMENSTRUAL SYNDROME
     Dosage: UNK
     Dates: start: 20070301, end: 20090401
  2. CYTOMEL [Concomitant]
     Indication: HYPOTHYROIDISM
     Dosage: UNK
     Dates: start: 20070101
  3. NAPROXEN (ALEVE) [Concomitant]
     Dosage: UNK
     Dates: start: 20050101

REACTIONS (8)
  - CEREBROVASCULAR ACCIDENT [None]
  - FEAR [None]
  - PAIN [None]
  - EMOTIONAL DISTRESS [None]
  - PSYCHOLOGICAL TRAUMA [None]
  - INJURY [None]
  - ANXIETY [None]
  - ANHEDONIA [None]
